FAERS Safety Report 25088483 (Version 5)
Quarter: 2025Q3

REPORT INFORMATION
  Report Type: Spontaneous
  Country: AR (occurrence: AR)
  Receive Date: 20250318
  Receipt Date: 20250717
  Transmission Date: 20251021
  Serious: Yes (Other)
  Sender: SANDOZ
  Company Number: AR-002147023-NVSC2025AR025034

PATIENT
  Sex: Female

DRUGS (17)
  1. FULVESTRANT [Suspect]
     Active Substance: FULVESTRANT
     Dosage: 2 DF, QMO (1 IN EACH GLUTEUS)
     Route: 030
  2. FULVESTRANT [Suspect]
     Active Substance: FULVESTRANT
     Route: 030
  3. FULVESTRANT [Suspect]
     Active Substance: FULVESTRANT
     Dosage: UNK, Q2W
     Route: 065
     Dates: start: 20250205
  4. FULVESTRANT [Suspect]
     Active Substance: FULVESTRANT
     Indication: Breast cancer metastatic
     Route: 065
     Dates: start: 20250204
  5. FULVESTRANT [Suspect]
     Active Substance: FULVESTRANT
     Route: 065
  6. KISQALI [Suspect]
     Active Substance: RIBOCICLIB SUCCINATE
     Dosage: 600 MG, QD
     Route: 048
  7. KISQALI [Suspect]
     Active Substance: RIBOCICLIB SUCCINATE
     Indication: Breast cancer metastatic
     Dosage: 3 DOSAGE FORM, QD ((600 MG)
     Route: 048
     Dates: start: 20250205
  8. KISQALI [Suspect]
     Active Substance: RIBOCICLIB SUCCINATE
     Route: 048
  9. ZOMETA [Suspect]
     Active Substance: ZOLEDRONIC ACID
     Dosage: 4 MG/ 5ML, QMO
     Route: 042
  10. ZOMETA [Suspect]
     Active Substance: ZOLEDRONIC ACID
     Indication: Breast cancer metastatic
     Dosage: UNK, QMO
     Route: 065
     Dates: start: 20250205
  11. ZOMETA [Suspect]
     Active Substance: ZOLEDRONIC ACID
     Route: 065
  12. ALPRAZOLAM [Concomitant]
     Active Substance: ALPRAZOLAM
     Indication: Restlessness
     Route: 065
  13. APIXABAN [Concomitant]
     Active Substance: APIXABAN
     Indication: Product used for unknown indication
     Route: 065
  14. ATORVASTATIN [Concomitant]
     Active Substance: ATORVASTATIN
     Indication: Product used for unknown indication
     Route: 065
  15. LORATADINE [Concomitant]
     Active Substance: LORATADINE
     Indication: Product used for unknown indication
     Route: 065
  16. TRAMADOL [Concomitant]
     Active Substance: TRAMADOL
     Indication: Pain
     Route: 065
  17. Tueris [Concomitant]
     Indication: Product used for unknown indication
     Route: 065

REACTIONS (16)
  - Rectal haemorrhage [Unknown]
  - Metastasis [Unknown]
  - Metastases to bone [Unknown]
  - Metastases to liver [Unknown]
  - Metastases to soft tissue [Unknown]
  - Thrombosis [Unknown]
  - Blood pressure abnormal [Unknown]
  - Scan abnormal [Unknown]
  - Psychological trauma [Unknown]
  - Fear [Unknown]
  - Malaise [Unknown]
  - Fatigue [Unknown]
  - Anxiety [Recovered/Resolved]
  - Constipation [Recovered/Resolved]
  - Drug ineffective [Unknown]
  - Vomiting [Recovered/Resolved]
